FAERS Safety Report 13432587 (Version 2)
Quarter: 2017Q2

REPORT INFORMATION
  Report Type: Spontaneous
  Country: TW (occurrence: TW)
  Receive Date: 20170412
  Receipt Date: 20170509
  Transmission Date: 20170830
  Serious: Yes (Death, Other)
  Sender: FDA-Public Use
  Company Number: TW-ROCHE-1918793

PATIENT
  Age: 54 Year
  Sex: Female

DRUGS (3)
  1. AVASTIN [Suspect]
     Active Substance: BEVACIZUMAB
     Indication: CERVIX CARCINOMA
     Route: 065
     Dates: start: 20150331, end: 20151117
  2. PACLITAXEL. [Suspect]
     Active Substance: PACLITAXEL
     Indication: CERVIX CARCINOMA
     Route: 065
     Dates: start: 20140626, end: 20151117
  3. CISPLATIN. [Suspect]
     Active Substance: CISPLATIN
     Indication: CERVIX CARCINOMA
     Route: 065
     Dates: start: 20140409, end: 20151117

REACTIONS (8)
  - Organ failure [Fatal]
  - Choking [Unknown]
  - Productive cough [Unknown]
  - Cough [Unknown]
  - Headache [Unknown]
  - Somnolence [Unknown]
  - Haematuria [Unknown]
  - Pyrexia [Unknown]

NARRATIVE: CASE EVENT DATE: 2016
